FAERS Safety Report 14932876 (Version 2)
Quarter: 2018Q2

REPORT INFORMATION
  Report Type: Report from Study
  Country: US (occurrence: US)
  Receive Date: 20180524
  Receipt Date: 20180531
  Transmission Date: 20180711
  Serious: Yes (Other)
  Sender: FDA-Public Use
  Company Number: US-ROCHE-2128643

PATIENT
  Sex: Female

DRUGS (14)
  1. TRAMADOL. [Concomitant]
     Active Substance: TRAMADOL
     Route: 048
  2. OXAPROZIN. [Concomitant]
     Active Substance: OXAPROZIN
     Route: 048
  3. VOLTAREN [Concomitant]
     Active Substance: DICLOFENAC SODIUM
     Route: 065
  4. NEXIUM [Concomitant]
     Active Substance: ESOMEPRAZOLE MAGNESIUM
     Route: 065
  5. ONDANSETRON HCL [Concomitant]
     Active Substance: ONDANSETRON HYDROCHLORIDE
     Route: 065
  6. XOLAIR [Suspect]
     Active Substance: OMALIZUMAB
     Indication: ASTHMA
     Route: 065
     Dates: start: 2008
  7. XOLAIR [Suspect]
     Active Substance: OMALIZUMAB
     Route: 065
     Dates: start: 20161006
  8. NIFEDIPINE. [Concomitant]
     Active Substance: NIFEDIPINE
     Route: 065
  9. VIVELLE (UNITED STATES) [Concomitant]
     Route: 065
  10. AMITRIPTYLINE [Concomitant]
     Active Substance: AMITRIPTYLINE
     Route: 065
  11. XOLAIR [Suspect]
     Active Substance: OMALIZUMAB
     Dosage: SUBSEQUENT DOSES ON  08/DEC/2016, 12/JAN/2017, 09/FEB/2017 AND 08/JUN/2017
     Route: 065
     Dates: start: 20161103
  12. BENADRYL [Concomitant]
     Active Substance: DIPHENHYDRAMINE HYDROCHLORIDE
  13. SAVELLA [Concomitant]
     Active Substance: MILNACIPRAN HYDROCHLORIDE
     Route: 065
  14. LIDOCAINE. [Concomitant]
     Active Substance: LIDOCAINE
     Route: 061

REACTIONS (2)
  - Asthma [Unknown]
  - Anaphylactic shock [Unknown]
